FAERS Safety Report 6528484-3 (Version None)
Quarter: 2009Q4

REPORT INFORMATION
  Report Type: 
  Country: None (occurrence: None)
  Receive Date: 20091222
  Receipt Date: 20090909
  Transmission Date: 20100525
  Serious: No
  Sender: FDA-Public Use
  Company Number: ALL1-2009-02640

PATIENT
  Age: 9 Year
  Sex: Male
  Weight: 28.1 kg

DRUGS (1)
  1. VYVANSE [Suspect]
     Indication: ATTENTION DEFICIT/HYPERACTIVITY DISORDER
     Dosage: 40 MG, 1X/DAY:QD, ORAL
     Route: 048
     Dates: start: 20090905

REACTIONS (3)
  - HEADACHE [None]
  - PRODUCT QUALITY ISSUE [None]
  - RETCHING [None]
